FAERS Safety Report 24194662 (Version 2)
Quarter: 2024Q3

REPORT INFORMATION
  Report Type: Spontaneous
  Country: CN (occurrence: CN)
  Receive Date: 20240809
  Receipt Date: 20240821
  Transmission Date: 20241017
  Serious: Yes (Other)
  Sender: ORGANON
  Company Number: CN-009507513-2407CHN003407

PATIENT
  Age: 76 Year
  Sex: Male
  Weight: 51.2 kg

DRUGS (56)
  1. EZETIMIBE [Suspect]
     Active Substance: EZETIMIBE
     Indication: Hyperlipidaemia
     Dosage: 10 MG DAILY
     Route: 048
     Dates: start: 20230214, end: 20240617
  2. VERICIGUAT [Suspect]
     Active Substance: VERICIGUAT
     Indication: Heart failure with reduced ejection fraction
     Dosage: UNK
     Route: 048
     Dates: start: 20220729, end: 20240611
  3. LEVOFLOXACIN [Suspect]
     Active Substance: LEVOFLOXACIN
     Indication: Urinary tract inflammation
     Dosage: 250 MG DAILY
     Route: 048
     Dates: start: 20240613, end: 20240614
  4. AMIODARONE HYDROCHLORIDE [Suspect]
     Active Substance: AMIODARONE HYDROCHLORIDE
     Indication: Atrial fibrillation
     Dosage: 300 MG DAILY
     Route: 042
     Dates: start: 20240613, end: 20240613
  5. CEFOPERAZONE SODIUM\SULBACTAM SODIUM [Suspect]
     Active Substance: CEFOPERAZONE SODIUM\SULBACTAM SODIUM
     Indication: Pneumonia
     Dosage: 1.5 GRAM, BID (3 G DAILY)
     Route: 042
     Dates: start: 20240614, end: 20240615
  6. FINASTERIDE [Concomitant]
     Active Substance: FINASTERIDE
     Dosage: 5 MG DAILY, FREQ: QD
     Route: 048
     Dates: start: 20220729
  7. FINASTERIDE [Concomitant]
     Active Substance: FINASTERIDE
     Dosage: [14]  5 MG DAILY, FREQ: QD
     Route: 048
     Dates: start: 20220729
  8. HARNAL [Concomitant]
     Active Substance: TAMSULOSIN HYDROCHLORIDE
     Indication: Benign prostatic hyperplasia
     Dosage: 0.2 MG DAILY
     Route: 048
     Dates: start: 20220729, end: 20240617
  9. WARFARIN SODIUM [Concomitant]
     Active Substance: WARFARIN SODIUM
     Indication: Anticoagulant therapy
     Dosage: 1.5 MG DAILY
     Route: 048
     Dates: start: 20220729, end: 20240614
  10. LIPITOR [Concomitant]
     Active Substance: ATORVASTATIN CALCIUM
     Indication: Hyperlipidaemia
     Dosage: 10 MG DAILY
     Route: 048
     Dates: start: 20240604
  11. COATED ALDEHYDE OXYSTARCH [Concomitant]
     Indication: Renal failure
     Dosage: 2500 MILLIGRAM, TID (7500 MG DAILY, FREQ: TID)
     Route: 048
     Dates: start: 20240506, end: 20240617
  12. ESTAZOLAM [Concomitant]
     Active Substance: ESTAZOLAM
     Dosage: [62]  2 MG DAILY, FREQ: QD, STRENGTH: 2 MG
     Route: 048
     Dates: start: 20240220, end: 20240610
  13. ESTAZOLAM [Concomitant]
     Active Substance: ESTAZOLAM
     Indication: Sleep disorder
     Dosage: [63]  1 MG DAILY, FREQ: QD, STRENGTH: 1 MG
     Route: 048
     Dates: start: 20240611, end: 20240617
  14. ESTAZOLAM [Concomitant]
     Active Substance: ESTAZOLAM
     Indication: Sleep disorder therapy
     Dosage: [63]  1 MG DAILY, FREQ: QD, STRENGTH: 1 MG
     Route: 048
     Dates: start: 20240611, end: 20240617
  15. ESTAZOLAM [Concomitant]
     Active Substance: ESTAZOLAM
     Indication: Sleep disorder therapy
     Dosage: 1 MG QD
     Route: 048
     Dates: start: 20240611, end: 20240617
  16. TOLVAPTAN [Concomitant]
     Active Substance: TOLVAPTAN
     Indication: Cardiac failure
     Dosage: 15 MILLIGRAM, QD
     Route: 048
     Dates: start: 20240604, end: 20240615
  17. ALLOPURINOL [Concomitant]
     Active Substance: ALLOPURINOL
     Indication: Hyperuricaemia
     Dosage: 0.25 GRAM, QD
     Route: 048
     Dates: start: 20240606, end: 20240617
  18. ENTRESTO [Concomitant]
     Active Substance: SACUBITRIL\VALSARTAN
     Indication: Cardiac failure chronic
     Dosage: 100 MILLIGRAM, BID (200 MG DAILY)
     Route: 048
     Dates: start: 20240604, end: 20240612
  19. FUROSEMIDE [Concomitant]
     Active Substance: FUROSEMIDE
     Indication: Cardiac failure chronic
     Dosage: 40 MILLIGRAM, BID (80 MG DAILY) STRENGTH: 40 MG
     Route: 048
     Dates: start: 20240604, end: 20240612
  20. FUROSEMIDE [Concomitant]
     Active Substance: FUROSEMIDE
     Dosage: [82]  60 MG DAILY, FREQ: ONCE, STRENGTH: 60 MG
     Route: 042
     Dates: start: 20240613, end: 20240613
  21. FUROSEMIDE [Concomitant]
     Active Substance: FUROSEMIDE
     Dosage: [95]  80 MG DAILY, FREQ: ONCE, STRENGTH: 80 MG
     Route: 042
     Dates: start: 20240614, end: 20240614
  22. AMINOPHYLLINE\CHLORPHENIRAMINE MALEATE\METHOXYPHENAMINE HYDROCHLORIDE\ [Concomitant]
     Active Substance: AMINOPHYLLINE\CHLORPHENIRAMINE MALEATE\METHOXYPHENAMINE HYDROCHLORIDE\NOSCAPINE
     Indication: Productive cough
     Dosage: 25 MILLIGRAM, TID (75 MG DAILY)
     Route: 048
     Dates: start: 20240611, end: 20240617
  23. SODIUM ZIRCONIUM CYCLOSILICATE [Concomitant]
     Active Substance: SODIUM ZIRCONIUM CYCLOSILICATE
     Indication: Renal failure
     Dosage: 1 DOSAGE FORM, TID (20 G DAILY, FREQ: TID, FORM: SPARY)
     Route: 048
     Dates: start: 20230614, end: 20240614
  24. SODIUM ZIRCONIUM CYCLOSILICATE [Concomitant]
     Active Substance: SODIUM ZIRCONIUM CYCLOSILICATE
     Dosage: 5 GRAM, BID (10 G DAILY, FREQ: BID, FORM: SPARY)
     Route: 048
     Dates: start: 20230615, end: 20230615
  25. BISOPROLOL [Concomitant]
     Active Substance: BISOPROLOL\BISOPROLOL FUMARATE
     Indication: Cardiac failure chronic
     Dosage: 7.5 MG DAILY
     Route: 048
     Dates: start: 20240416, end: 20240615
  26. DOPAMINE HYDROCHLORIDE [Concomitant]
     Active Substance: DOPAMINE HYDROCHLORIDE
     Indication: Cardiac failure chronic
     Dosage: 200 MILLIGRAM, BID (400 MG DAILY)
     Route: 042
     Dates: start: 20240613, end: 20240613
  27. DOPAMINE HYDROCHLORIDE [Concomitant]
     Active Substance: DOPAMINE HYDROCHLORIDE
     Dosage: 200 MILLIGRAM, TID (600 MG DAILY)
     Route: 042
     Dates: start: 20240614, end: 20240617
  28. FUROSEMIDE [Concomitant]
     Active Substance: FUROSEMIDE
     Indication: Cardiac failure chronic
     Dosage: 60 MG DAILY, FREQ: ONCE, STRENGTH: 60 MG
     Route: 042
     Dates: start: 20240613, end: 20240613
  29. MAGNESIUM SULFATE [Concomitant]
     Active Substance: MAGNESIUM SULFATE\MAGNESIUM SULFATE HEPTAHYDRATE
     Indication: Cardiac failure chronic
     Dosage: [83]  2 ML DAILY, FREQ: ONCE
     Route: 042
     Dates: start: 20240613, end: 20240613
  30. MAGNESIUM SULFATE [Concomitant]
     Active Substance: MAGNESIUM SULFATE\MAGNESIUM SULFATE HEPTAHYDRATE
     Indication: Cardiac failure chronic
  31. POTASSIUM CHLORIDE [Concomitant]
     Active Substance: POTASSIUM CHLORIDE
     Indication: Mineral supplementation
     Dosage: 5 ML DAILY, FREQ: ONCE
     Route: 042
     Dates: start: 20240613, end: 20240613
  32. POTASSIUM CHLORIDE [Concomitant]
     Active Substance: POTASSIUM CHLORIDE
     Indication: Mineral supplementation
     Dosage: 3 GRAM, BID (6 G DAILY)
     Route: 048
     Dates: start: 20240613, end: 20240613
  33. LEVOSIMENDAN [Concomitant]
     Active Substance: LEVOSIMENDAN
     Indication: Cardiac failure chronic
     Dosage: [86]  12.5 MG DAILY, FREQ: ONCE
     Route: 042
     Dates: start: 20240613, end: 20240613
  34. LEVOSIMENDAN [Concomitant]
     Active Substance: LEVOSIMENDAN
     Indication: Cardiac failure chronic
  35. CELECOXIB [Concomitant]
     Active Substance: CELECOXIB
     Indication: Urinary tract infection
     Dosage: 200 MG DAILY, FREQ: ONCE
     Route: 048
     Dates: start: 20240613, end: 20240613
  36. CELECOXIB [Concomitant]
     Active Substance: CELECOXIB
     Indication: Urinary tract pain
  37. LACTULOSE [Concomitant]
     Active Substance: LACTULOSE
     Indication: Constipation prophylaxis
     Dosage: 10 ML DAILY, FREQ: ONCE
     Route: 048
     Dates: start: 20240614, end: 20240614
  38. TORSEMIDE [Concomitant]
     Active Substance: TORSEMIDE
     Indication: Cardiac failure chronic
     Dosage: 20 MG DAILY, FREQ: ONCE
     Route: 042
     Dates: start: 20240614, end: 20240614
  39. ALBUMIN HUMAN [Concomitant]
     Active Substance: ALBUMIN HUMAN
     Indication: Polyuria
     Dosage: 100 ML DAILY, FREQ: BID
     Route: 042
     Dates: start: 20240614, end: 20240621
  40. ALBUMIN HUMAN [Concomitant]
     Active Substance: ALBUMIN HUMAN
     Indication: Hypoalbuminaemia
  41. DESLANOSIDE [Concomitant]
     Active Substance: DESLANOSIDE
     Indication: Cardiac failure chronic
     Dosage: 0.4 MG DAILY, FREQ: ONCE
     Route: 042
     Dates: start: 20240615, end: 20240615
  42. DESLANOSIDE [Concomitant]
     Active Substance: DESLANOSIDE
     Indication: Cardiac failure
  43. VITAMIN K1 [Concomitant]
     Active Substance: PHYTONADIONE
     Indication: Coagulopathy
     Dosage: 20 MG DAILY, FREQ: BID
     Route: 042
     Dates: start: 20240616, end: 20240616
  44. FURANCILIN [Concomitant]
     Indication: Product used for unknown indication
     Dosage: 1 APPLICATION, PRN, STRENGTH: 1 APPLICATION, FORM: SOLUTION
     Route: 061
     Dates: start: 20240614, end: 20240614
  45. MULTIVITAMIN AND ELEMENTS TABLETS (29-II) [Concomitant]
     Indication: Nutritional supplementation
     Dosage: 1 TABLET DAILY, FREQ: QD, STRENGTH: 1 TABLET
     Route: 048
     Dates: start: 20240614, end: 20240625
  46. LIVE COMBINED BIFIDOBACTERIUM AND LACTOBACILLUS [Concomitant]
     Indication: Diarrhoea
     Dosage: 3000 MG DAILY, FREQ: TID
     Route: 048
     Dates: start: 20240614, end: 20240617
  47. LIVE COMBINED BIFIDOBACTERIUM AND LACTOBACILLUS [Concomitant]
     Indication: Gastrointestinal disorder
  48. TEPRENONE [Concomitant]
     Active Substance: TEPRENONE
     Indication: Gastrointestinal disorder prophylaxis
     Dosage: 100 MG DAILY, FREQ: BID
     Route: 048
     Dates: start: 20240614, end: 20240625
  49. PIPERACILLIN AND TAZOBACTAM [Concomitant]
     Active Substance: PIPERACILLIN SODIUM\TAZOBACTAM SODIUM
     Indication: Pneumonia
     Dosage: 13.5 G DAILY, FREQ: TID
     Route: 042
     Dates: start: 20240616, end: 20240625
  50. DIGOXIN [Concomitant]
     Active Substance: DIGOXIN
     Indication: Cardiac failure chronic
     Dosage: 0.25 MG DAILY, FREQ: QD
     Route: 048
     Dates: start: 20240615, end: 20240617
  51. POTASSIUM CHLORIDE [Concomitant]
     Active Substance: POTASSIUM CHLORIDE
     Indication: Mineral supplementation
     Dosage: 2.1 G DAILY, FREQ: BID, STRENGTH: 1.05 G, FORM: PATCH
     Route: 048
     Dates: start: 20240616, end: 20240616
  52. FUROSEMIDE [Concomitant]
     Active Substance: FUROSEMIDE
     Indication: Cardiac failure chronic
     Dosage: 100 MILLIGRAM, ONCE DAILY
     Route: 042
     Dates: start: 20240614, end: 20240614
  53. FUROSEMIDE [Concomitant]
     Active Substance: FUROSEMIDE
     Indication: Cardiac failure chronic
     Dosage: 80 MILLIGRAM, DAILY FREQ: ONCE
     Route: 042
     Dates: start: 20240614, end: 20240614
  54. FUROSEMIDE [Concomitant]
     Active Substance: FUROSEMIDE
     Indication: Cardiac failure chronic
     Dosage: 100 MILLILITER, DAILY FREQ: ONCE
     Route: 042
     Dates: start: 20240618, end: 20240618
  55. FUROSEMIDE [Concomitant]
     Active Substance: FUROSEMIDE
     Indication: Cardiac failure chronic
     Dosage: 20 MILLIGRAM, BID (40 MG DAILY)
     Route: 048
     Dates: start: 20240613, end: 20240615
  56. POTASSIUM CHLORIDE [Concomitant]
     Active Substance: POTASSIUM CHLORIDE
     Indication: Mineral supplementation
     Dosage: 2.1 GRAM, BID (4.2 G DAILY, FREQ: BID, STRENGTH: 2.1 G, FORM: PATCH )
     Route: 048
     Dates: start: 20240618, end: 20240618

REACTIONS (1)
  - Drug-induced liver injury [Not Recovered/Not Resolved]

NARRATIVE: CASE EVENT DATE: 20240618
